FAERS Safety Report 8888294 (Version 1)
Quarter: 2012Q4

REPORT INFORMATION
  Report Type: 
  Country: GB (occurrence: GB)
  Receive Date: 20121106
  Receipt Date: 20121106
  Transmission Date: 20130627
  Serious: Yes (Other)
  Sender: FDA-Public Use
  Company Number: GB-PFIZER INC-2012251752

PATIENT
  Age: 47 Year
  Sex: Male
  Weight: 117 kg

DRUGS (2)
  1. CHAMPIX [Suspect]
     Indication: SMOKING CESSATION THERAPY
     Dosage: 1 x 1mg dose
     Dates: start: 20120910, end: 201209
  2. CHAMPIX [Suspect]
     Dosage: 2500mcg dose
     Dates: start: 201209, end: 20120929

REACTIONS (7)
  - Suicidal ideation [Recovered/Resolved]
  - Anger [Recovered/Resolved]
  - Agitation [Recovered/Resolved]
  - Depression [Recovered/Resolved]
  - Tearfulness [Recovered/Resolved]
  - Anxiety [Recovered/Resolved]
  - Blood pressure increased [Unknown]
